FAERS Safety Report 21376596 (Version 4)
Quarter: 2023Q1

REPORT INFORMATION
  Report Type: Report from Study
  Country: US (occurrence: US)
  Receive Date: 20220926
  Receipt Date: 20230202
  Transmission Date: 20230418
  Serious: Yes (Other)
  Sender: FDA-Public Use
  Company Number: US-AGIOS-2209US03134

PATIENT
  Sex: Female

DRUGS (1)
  1. MITAPIVAT [Suspect]
     Active Substance: MITAPIVAT
     Indication: Pyruvate kinase deficiency anaemia
     Dosage: 50 MILLIGRAM, BID
     Route: 048
     Dates: start: 20220321

REACTIONS (9)
  - Thrombocytopenia [Not Recovered/Not Resolved]
  - Rheumatoid arthritis [Recovering/Resolving]
  - Increased tendency to bruise [Not Recovered/Not Resolved]
  - Contusion [Not Recovered/Not Resolved]
  - Pallor [Not Recovered/Not Resolved]
  - Fatigue [Recovering/Resolving]
  - Abdominal pain [Not Recovered/Not Resolved]
  - Therapeutic product effect decreased [Not Recovered/Not Resolved]
  - Fibromyalgia [Recovering/Resolving]
